FAERS Safety Report 10050012 (Version 1)
Quarter: 2014Q2

REPORT INFORMATION
  Report Type: Spontaneous
  Country: US (occurrence: US)
  Receive Date: 20140401
  Receipt Date: 20140401
  Transmission Date: 20141212
  Serious: Yes (Hospitalization)
  Sender: FDA-Public Use
  Company Number: US-BANPHARM-20142457

PATIENT
  Age: 81 Year
  Sex: Male

DRUGS (1)
  1. LOPERAMIDE UNKNOWN PRODUCT [Suspect]
     Indication: DIARRHOEA

REACTIONS (6)
  - Tachypnoea [Unknown]
  - Hydronephrosis [Unknown]
  - Large intestinal obstruction [Unknown]
  - Electrolyte imbalance [Recovered/Resolved]
  - Renal failure acute [Unknown]
  - Acidosis [Recovered/Resolved]
